FAERS Safety Report 6473544-9 (Version None)
Quarter: 2009Q4

REPORT INFORMATION
  Report Type: 
  Country: None (occurrence: None)
  Receive Date: 20091204
  Receipt Date: 20081126
  Transmission Date: 20100525
  Serious: Yes (Hospitalization)
  Sender: FDA-Public Use
  Company Number: FR-ELI_LILLY_AND_COMPANY-FR200811006025

PATIENT
  Age: 60 Year
  Sex: Male

DRUGS (2)
  1. GEMZAR [Suspect]
     Indication: SQUAMOUS CELL CARCINOMA
     Dosage: UNK, UNKNOWN
     Route: 042
     Dates: start: 20080822
  2. PLATINUM COMPOUNDS [Concomitant]
     Indication: SQUAMOUS CELL CARCINOMA
     Dosage: UNK, UNKNOWN
     Route: 042
     Dates: start: 20080822, end: 20080822

REACTIONS (5)
  - CHOLESTASIS [None]
  - CONDITION AGGRAVATED [None]
  - CYTOLYTIC HEPATITIS [None]
  - GENERAL PHYSICAL CONDITION ABNORMAL [None]
  - THROMBOCYTOPENIA [None]
